FAERS Safety Report 23024674 (Version 1)
Quarter: 2023Q4

REPORT INFORMATION
  Report Type: Report from Study
  Country: US (occurrence: US)
  Receive Date: 20231004
  Receipt Date: 20231004
  Transmission Date: 20240109
  Serious: Yes (Other)
  Sender: FDA-Public Use
  Company Number: US-AUROBINDO-AUR-APL-2023-061228

PATIENT
  Age: 72 Year
  Sex: Female

DRUGS (4)
  1. METHYLPREDNISOLONE [Suspect]
     Active Substance: METHYLPREDNISOLONE
     Indication: Immune-mediated myositis
     Dosage: 1 GRAM, ONCE A DAY FOR 3 DAYS
     Route: 042
  2. METHYLPREDNISOLONE [Suspect]
     Active Substance: METHYLPREDNISOLONE
     Indication: Myasthenia gravis
     Dosage: 80 MILLIGRAM, ONCE A DAY
     Route: 042
  3. MOGAMULIZUMAB [Concomitant]
     Active Substance: MOGAMULIZUMAB
     Indication: Cutaneous T-cell lymphoma
     Dosage: 5 CYCLES
     Route: 065
  4. MOGAMULIZUMAB [Concomitant]
     Active Substance: MOGAMULIZUMAB
     Dosage: UNK
     Route: 065
     Dates: start: 2019

REACTIONS (1)
  - Drug ineffective [Unknown]
